FAERS Safety Report 21830644 (Version 1)
Quarter: 2023Q1

REPORT INFORMATION
  Report Type: Spontaneous
  Country: US (occurrence: None)
  Receive Date: 20230105
  Receipt Date: 20230105
  Transmission Date: 20230417
  Serious: Yes (Other)
  Sender: FDA-Public Use
  Company Number: None

PATIENT
  Age: 51 Year
  Sex: Male
  Weight: 103.1 kg

DRUGS (9)
  1. PACLITAXEL [Suspect]
     Active Substance: PACLITAXEL
     Indication: Salivary gland cancer
     Dosage: OTHER FREQUENCY : EVERY 21 DAYS;?
     Route: 042
     Dates: start: 20221206
  2. DEXAMETHASONE [Concomitant]
     Active Substance: DEXAMETHASONE
     Dates: start: 20221206
  3. PERTUZUMAB [Concomitant]
     Active Substance: PERTUZUMAB
     Dates: start: 20221206
  4. TRASTUZUMAB-ANNS [Concomitant]
     Active Substance: TRASTUZUMAB-ANNS
     Dates: start: 20221206
  5. CARBOPLATIN [Concomitant]
     Active Substance: CARBOPLATIN
     Dates: start: 20221206
  6. APREPITANT [Concomitant]
     Active Substance: APREPITANT
     Dates: start: 20221206
  7. PALONOSETRON [Concomitant]
     Active Substance: PALONOSETRON
     Dates: start: 20221206
  8. FAMOTIDINE [Concomitant]
     Active Substance: FAMOTIDINE
     Dates: start: 20221206
  9. DIPHENHYDRAMINE [Concomitant]
     Active Substance: DIPHENHYDRAMINE
     Dates: start: 20221206

REACTIONS (1)
  - Back pain [None]

NARRATIVE: CASE EVENT DATE: 20221227
